FAERS Safety Report 6086623-5 (Version None)
Quarter: 2009Q1

REPORT INFORMATION
  Report Type: 
  Country: None (occurrence: None)
  Receive Date: 20090223
  Receipt Date: 20090213
  Transmission Date: 20090719
  Serious: Yes (Hospitalization)
  Sender: FDA-Public Use
  Company Number: US-AMGEN-US333753

PATIENT
  Sex: Male

DRUGS (15)
  1. ARANESP [Suspect]
     Indication: ANAEMIA OF MALIGNANT DISEASE
     Route: 065
     Dates: start: 20070901
  2. REVLIMID [Suspect]
     Route: 048
     Dates: start: 20070723, end: 20080701
  3. VELCADE [Suspect]
     Dates: start: 20080926
  4. PNEUMOVAX 23 [Concomitant]
     Dates: start: 20081107, end: 20081107
  5. MELPHALAN [Concomitant]
     Dates: start: 20070608
  6. DECADRON [Concomitant]
  7. PREDNISONE TAB [Concomitant]
  8. COUMADIN [Concomitant]
  9. FERGON [Concomitant]
  10. AREDIA [Concomitant]
  11. ZOMETA [Concomitant]
  12. AMIODARONE [Concomitant]
  13. INFLUENZA VACCINE [Concomitant]
     Dates: start: 20081107, end: 20081107
  14. CYTOXAN [Concomitant]
  15. VINCRISTINE [Concomitant]

REACTIONS (11)
  - ANAEMIA [None]
  - ATRIAL FIBRILLATION [None]
  - FALL [None]
  - FATIGUE [None]
  - HYPOTENSION [None]
  - OEDEMA PERIPHERAL [None]
  - ORTHOSTATIC HYPOTENSION [None]
  - PRESYNCOPE [None]
  - SYNCOPE [None]
  - THROMBOCYTOPENIA [None]
  - WEIGHT DECREASED [None]
